FAERS Safety Report 16211065 (Version 1)
Quarter: 2019Q2

REPORT INFORMATION
  Report Type: Spontaneous
  Country: US (occurrence: US)
  Receive Date: 20190417
  Receipt Date: 20190417
  Transmission Date: 20190711
  Serious: No
  Sender: FDA-Public Use
  Company Number: None

PATIENT
  Age: 20 Year
  Sex: Male
  Weight: 99 kg

DRUGS (1)
  1. ICY HOT MEDICATED NO MESS APPLICATOR [Suspect]
     Active Substance: MENTHOL
     Indication: LIGAMENT SPRAIN
     Route: 061
     Dates: start: 20190414, end: 20190416

REACTIONS (2)
  - Application site pain [None]
  - Chemical burn [None]

NARRATIVE: CASE EVENT DATE: 20190416
